FAERS Safety Report 21670561 (Version 1)
Quarter: 2022Q4

REPORT INFORMATION
  Report Type: Spontaneous
  Country: US (occurrence: US)
  Receive Date: 20221201
  Receipt Date: 20221201
  Transmission Date: 20230112
  Serious: No
  Sender: FDA-Public Use
  Company Number: US-BRISTOL-MYERS SQUIBB COMPANY-2022-146845

PATIENT
  Age: 19 Year
  Sex: Female

DRUGS (2)
  1. SOTYKTU [Suspect]
     Active Substance: DEUCRAVACITINIB
     Indication: Psoriasis
     Dosage: DOSE : 6MG;     FREQ : DAILY
     Route: 048
     Dates: start: 20221103, end: 20221106
  2. SOTYKTU [Suspect]
     Active Substance: DEUCRAVACITINIB
     Dosage: DOSE : 6MG;     FREQ : DAILY
     Route: 048
     Dates: start: 20221108, end: 20221110

REACTIONS (1)
  - Acne [Not Recovered/Not Resolved]

NARRATIVE: CASE EVENT DATE: 20221106
